FAERS Safety Report 23737287 (Version 1)
Quarter: 2024Q2

REPORT INFORMATION
  Report Type: Spontaneous
  Country: US (occurrence: US)
  Receive Date: 20240412
  Receipt Date: 20240412
  Transmission Date: 20240716
  Serious: Yes (Other)
  Sender: FDA-Public Use
  Company Number: US-PFIZER INC-202400083513

PATIENT

DRUGS (2)
  1. BRAFTOVI [Suspect]
     Active Substance: ENCORAFENIB
     Dosage: 150 MG, 1X/DAY
  2. BRAFTOVI [Suspect]
     Active Substance: ENCORAFENIB
     Dosage: 75 MG, 1X/DAY

REACTIONS (1)
  - Electrocardiogram QT prolonged [Recovered/Resolved]
